FAERS Safety Report 18425646 (Version 1)
Quarter: 2020Q4

REPORT INFORMATION
  Report Type: Spontaneous
  Country: US (occurrence: US)
  Receive Date: 20201026
  Receipt Date: 20201026
  Transmission Date: 20210114
  Serious: No
  Sender: FDA-Public Use
  Company Number: US-TEVA-2020-US-1834649

PATIENT
  Age: 57 Year
  Sex: Female
  Weight: 53.5 kg

DRUGS (6)
  1. VITAMIN D3 10 MCG CAPSULE [Concomitant]
  2. ESTRADIOL 0.5 MG TABLET [Concomitant]
  3. LAMOTRIGINE 100 MG TABLET [Concomitant]
     Active Substance: LAMOTRIGINE
  4. PROGESTERONE 200 MG CAPSULE [Concomitant]
     Active Substance: PROGESTERONE
  5. AUSTEDO [Suspect]
     Active Substance: DEUTETRABENAZINE
     Indication: TARDIVE DYSKINESIA
     Dosage: 12 MILLIGRAM DAILY;
     Route: 048
     Dates: start: 202006
  6. VITAMIN C 1000 MG TABLET [Concomitant]

REACTIONS (1)
  - Vision blurred [Not Recovered/Not Resolved]

NARRATIVE: CASE EVENT DATE: 202009
